FAERS Safety Report 20532313 (Version 7)
Quarter: 2025Q2

REPORT INFORMATION
  Report Type: Spontaneous
  Country: US (occurrence: US)
  Receive Date: 20220301
  Receipt Date: 20250618
  Transmission Date: 20250717
  Serious: No
  Sender: PFIZER
  Company Number: US-PFIZER INC-2021680932

PATIENT
  Age: 68 Year
  Sex: Female

DRUGS (1)
  1. XELJANZ XR [Suspect]
     Active Substance: TOFACITINIB CITRATE

REACTIONS (6)
  - Therapeutic product effect decreased [Unknown]
  - Alopecia [Unknown]
  - Feeling abnormal [Unknown]
  - Memory impairment [Unknown]
  - Condition aggravated [Unknown]
  - Blood cholesterol abnormal [Unknown]
